FAERS Safety Report 19747242 (Version 1)
Quarter: 2021Q3

REPORT INFORMATION
  Report Type: Report from Study
  Country: US (occurrence: US)
  Receive Date: 20210825
  Receipt Date: 20210825
  Transmission Date: 20211014
  Serious: Yes (Hospitalization)
  Sender: FDA-Public Use
  Company Number: US-EISAI MEDICAL RESEARCH-EC-2021-098428

PATIENT
  Age: 55 Year
  Sex: Female
  Weight: 83 kg

DRUGS (11)
  1. AMLODIPINE [Concomitant]
     Active Substance: AMLODIPINE BESYLATE
  2. ONDANSETRON [Concomitant]
     Active Substance: ONDANSETRON
  3. LENVIMA [Suspect]
     Active Substance: LENVATINIB
     Indication: THYROID CANCER
     Route: 048
     Dates: start: 20201214, end: 20210408
  4. DULOXETINE. [Concomitant]
     Active Substance: DULOXETINE
  5. LISINOPRIL. [Concomitant]
     Active Substance: LISINOPRIL
  6. ARIPIPRAZOLE. [Concomitant]
     Active Substance: ARIPIPRAZOLE
  7. LAMOTRIGINE. [Concomitant]
     Active Substance: LAMOTRIGINE
  8. LEVOTHYROXINE. [Concomitant]
     Active Substance: LEVOTHYROXINE
  9. CLONIDINE. [Concomitant]
     Active Substance: CLONIDINE
  10. MIRTAZAPINE. [Concomitant]
     Active Substance: MIRTAZAPINE
  11. LENVIMA [Suspect]
     Active Substance: LENVATINIB
     Indication: METASTASES TO LUNG
     Route: 048
     Dates: start: 2021, end: 2021

REACTIONS (3)
  - Oropharyngeal pain [Unknown]
  - Hypotension [Recovering/Resolving]
  - Loss of consciousness [Recovered/Resolved]

NARRATIVE: CASE EVENT DATE: 2021
